FAERS Safety Report 10772917 (Version 1)
Quarter: 2015Q1

REPORT INFORMATION
  Report Type: Other
  Country: US (occurrence: US)
  Receive Date: 20150207
  Receipt Date: 20150207
  Transmission Date: 20150721
  Serious: No
  Sender: FDA-Public Use
  Company Number: US-ACORDA-ACO_106270_2014

PATIENT

DRUGS (2)
  1. AMPYRA [Suspect]
     Active Substance: DALFAMPRIDINE
     Indication: PRODUCT USED FOR UNKNOWN INDICATION
     Dosage: 10 MG, BID
     Route: 048
     Dates: start: 201004, end: 201405
  2. AMPYRA [Suspect]
     Active Substance: DALFAMPRIDINE
     Dosage: UNK
     Route: 065

REACTIONS (10)
  - Fall [Unknown]
  - Rheumatoid arthritis [Unknown]
  - Contusion [Unknown]
  - Wheelchair user [Unknown]
  - Head injury [Unknown]
  - Peroneal nerve palsy [Unknown]
  - Foot operation [Unknown]
  - Therapy cessation [Unknown]
  - Periorbital contusion [Unknown]
  - Malaise [Unknown]

NARRATIVE: CASE EVENT DATE: 2013
